FAERS Safety Report 8622706-0 (Version None)
Quarter: 2012Q3

REPORT INFORMATION
  Report Type: 
  Country: None (occurrence: None)
  Receive Date: 20120827
  Receipt Date: 20120817
  Transmission Date: 20120928
  Serious: Yes (Hospitalization)
  Sender: FDA-Public Use
  Company Number: NL-GENZYME-CLOF-1002268

PATIENT
  Sex: Female
  Weight: 67.6 kg

DRUGS (8)
  1. IDARUBICIN HCL [Suspect]
     Indication: PRODUCT USED FOR UNKNOWN INDICATION
     Dosage: 48 MG, UNK, ON D1,D3,D5
     Route: 042
     Dates: start: 20120630
  2. FLUCONAZOLE [Concomitant]
     Indication: INFECTIOUS DISEASE CARRIER
     Dosage: 400 MG, QD
     Route: 048
     Dates: start: 20120716, end: 20120801
  3. VALACICLOVIR [Concomitant]
     Indication: ANTIVIRAL PROPHYLAXIS
     Dosage: 500 MG, BID
     Route: 048
     Dates: start: 20120718, end: 20120725
  4. CYTARABINE [Suspect]
     Indication: PRODUCT USED FOR UNKNOWN INDICATION
     Dosage: 1.80 G, UNK,CONTINUOUS INFUSION D1 TO D10
     Route: 042
     Dates: start: 20120630
  5. CEFTAZIDIME [Concomitant]
     Indication: INFECTION
     Dosage: 2000 MG, TID
     Route: 042
     Dates: start: 20120716, end: 20120802
  6. CLOFARABINE [Suspect]
     Indication: PRODUCT USED FOR UNKNOWN INDICATION
     Dosage: 90 MG, UNK, 1 HR INFUSION ON D2,D4,D6,D8,D10
     Route: 042
     Dates: start: 20120701
  7. OXAZEPAM [Concomitant]
     Indication: INSOMNIA
     Dosage: 10 MG, QD
     Route: 048
     Dates: start: 20120725, end: 20120726
  8. LEUCOPLENIN [Concomitant]
     Indication: INFECTION
     Dosage: 400 MG, QD
     Route: 042
     Dates: start: 20120723, end: 20120802

REACTIONS (2)
  - NODULE [None]
  - PYREXIA [None]
